FAERS Safety Report 4928187-2 (Version None)
Quarter: 2006Q1

REPORT INFORMATION
  Report Type: 
  Country: None (occurrence: None)
  Receive Date: 20060223
  Receipt Date: 20060131
  Transmission Date: 20060701
  Serious: Yes (Other)
  Sender: FDA-Public Use
  Company Number: CA200602000456

PATIENT
  Age: 62 Year
  Sex: Male

DRUGS (5)
  1. FORTEO [Suspect]
     Indication: OSTEOPOROSIS
     Dosage: 20 UG, DAILY (1/D),
     Dates: start: 20050526, end: 20060131
  2. FORTEO [Concomitant]
  3. CITRACAL (CALCIUM CITRATE) [Concomitant]
  4. MULTIVIT (VITAMINS NOS) [Concomitant]
  5. DETROL [Concomitant]

REACTIONS (4)
  - DIARRHOEA [None]
  - NAUSEA [None]
  - PROSTATE CANCER [None]
  - VOMITING [None]
